FAERS Safety Report 7598424-7 (Version None)
Quarter: 2011Q3

REPORT INFORMATION
  Report Type: 
  Country: None (occurrence: None)
  Receive Date: 20110708
  Receipt Date: 20110623
  Transmission Date: 20111222
  Serious: Yes (Other)
  Sender: FDA-Public Use
  Company Number: GB-GENENTECH-320767

PATIENT
  Age: 45 Year
  Sex: Female
  Weight: 60 kg

DRUGS (14)
  1. FLUTICASONE PROPIONATE [Concomitant]
     Indication: RHINITIS
  2. ALBUTEROL [Concomitant]
     Indication: ASTHMA
  3. MONTELUKAST SODIUM [Concomitant]
     Indication: ASTHMA
  4. ALENDRONIC ACID [Concomitant]
     Indication: PRODUCT USED FOR UNKNOWN INDICATION
  5. FLUOXETINE [Concomitant]
     Indication: DEPRESSION
  6. LANSOPRAZOLE [Concomitant]
     Indication: GASTROOESOPHAGEAL REFLUX DISEASE
  7. SYMBICORT [Concomitant]
     Indication: ASTHMA
  8. AMITRIPTYLINE HCL [Concomitant]
     Indication: DEPRESSION
  9. XOLAIR [Suspect]
     Indication: ASTHMA
     Dosage: 600 MG, UNKNOWN
     Route: 058
     Dates: start: 20110523, end: 20110608
  10. LEVOCETIRIZINE DIHYDROCHLORIDE [Concomitant]
     Indication: RHINITIS
  11. METOCLOPRAMIDE [Concomitant]
     Indication: GASTROOESOPHAGEAL REFLUX DISEASE
  12. RANITIDINE [Concomitant]
     Indication: GASTROOESOPHAGEAL REFLUX DISEASE
  13. THEOPHYLLINE [Concomitant]
     Indication: ASTHMA
  14. CALCICHEW [Concomitant]
     Indication: PRODUCT USED FOR UNKNOWN INDICATION

REACTIONS (5)
  - INFLUENZA LIKE ILLNESS [None]
  - PRURITUS [None]
  - HYPERSENSITIVITY [None]
  - HEADACHE [None]
  - LIP SWELLING [None]
